FAERS Safety Report 10787394 (Version 1)
Quarter: 2015Q1

REPORT INFORMATION
  Report Type: Report from Study
  Country: JP (occurrence: JP)
  Receive Date: 20150212
  Receipt Date: 20150212
  Transmission Date: 20150721
  Serious: Yes (Death, Other)
  Sender: FDA-Public Use
  Company Number: JP-009507513-1502JPN003244

PATIENT
  Age: 38 Year
  Sex: Female
  Weight: 74 kg

DRUGS (6)
  1. TEMODAL [Suspect]
     Active Substance: TEMOZOLOMIDE
     Indication: MALIGNANT OLIGODENDROGLIOMA
     Dosage: DAILY DOSAGE UNKNOWN
     Route: 048
     Dates: start: 20110624, end: 20120802
  2. BAKTAR [Concomitant]
     Active Substance: SULFAMETHOXAZOLE\TRIMETHOPRIM
     Indication: ANTIFUNGAL PROPHYLAXIS
     Dosage: DAILY DOSAGE UNKNOWN
     Route: 048
     Dates: start: 20120823, end: 20121017
  3. TEMOZOLOMIDE. [Suspect]
     Active Substance: TEMOZOLOMIDE
     Indication: MALIGNANT OLIGODENDROGLIOMA
     Dosage: 150 MG/M2, QD
     Route: 041
     Dates: start: 20120908, end: 20120912
  4. DEPAKENE [Concomitant]
     Active Substance: VALPROIC ACID
     Indication: PROPHYLAXIS
     Dosage: DAILY DOSAGE UNKNOWN
     Route: 048
     Dates: start: 20120904, end: 20121114
  5. MAGMITT [Concomitant]
     Active Substance: MAGNESIUM OXIDE
     Indication: PROPHYLAXIS
     Dosage: DAILY DOSAGE UNKNOWN
     Route: 048
     Dates: start: 20120903, end: 20121114
  6. INTERFERON NOS [Suspect]
     Active Substance: INTERFERON
     Indication: MALIGNANT OLIGODENDROGLIOMA
     Dosage: DAILY DOSAGE UNKNOWN
     Route: 051
     Dates: start: 20110624, end: 20120802

REACTIONS (2)
  - Disease progression [Fatal]
  - Platelet count decreased [Not Recovered/Not Resolved]

NARRATIVE: CASE EVENT DATE: 20120920
